FAERS Safety Report 6584893-8 (Version None)
Quarter: 2010Q1

REPORT INFORMATION
  Report Type: 
  Country: None (occurrence: None)
  Receive Date: 20100204
  Receipt Date: 20100120
  Transmission Date: 20100710
  Serious: Yes (Death, Life-Threatening)
  Sender: FDA-Public Use
  Company Number: 005396

PATIENT
  Sex: Male
  Weight: 72.0312 kg

DRUGS (6)
  1. KEPPRA [Suspect]
     Indication: EPILEPSY
  2. SUTENT [Suspect]
     Indication: METASTATIC RENAL CELL CARCINOMA
     Dosage: 50 MG QD ORAL, 37.5 MG QD ORAL
     Route: 048
     Dates: start: 20090619, end: 20090717
  3. SUTENT [Suspect]
     Indication: METASTATIC RENAL CELL CARCINOMA
     Dosage: 50 MG QD ORAL, 37.5 MG QD ORAL
     Route: 048
     Dates: start: 20090731, end: 20091109
  4. HEPARIN SODIUM [Concomitant]
  5. METHYLPREDNISOLONE [Concomitant]
  6. PIPERACILLIN SODIUM W/TAZOBACTAM SODIUM [Concomitant]

REACTIONS (9)
  - CARDIOPULMONARY FAILURE [None]
  - DEEP VEIN THROMBOSIS [None]
  - HEPATIC ENZYME INCREASED [None]
  - LEUKOPENIA [None]
  - MALIGNANT NEOPLASM PROGRESSION [None]
  - METASTATIC RENAL CELL CARCINOMA [None]
  - NEUTROPENIA [None]
  - PULMONARY EMBOLISM [None]
  - THROMBOCYTOPENIA [None]
